FAERS Safety Report 7732830-2 (Version None)
Quarter: 2011Q3

REPORT INFORMATION
  Report Type: 
  Country: None (occurrence: None)
  Receive Date: 20110901
  Receipt Date: 20110817
  Transmission Date: 20111222
  Serious: Yes (Disabling)
  Sender: FDA-Public Use
  Company Number: 2011MA012296

PATIENT
  Sex: Male

DRUGS (7)
  1. PRAMIPEXOLE DIHYCHLLORIDE [Suspect]
     Indication: RESTLESS LEGS SYNDROME
     Dosage: 125 MCG; QD; PO
     Route: 048
     Dates: start: 20110216, end: 20110517
  2. ESOMEPRAZOLE SODIUM [Concomitant]
  3. FEXOFENADINE [Concomitant]
  4. SODIUM CHLORIDE [Concomitant]
  5. CROMOGLYCATE [Concomitant]
  6. GAVISON ADVANCED [Concomitant]
  7. AMITRIPTYLINE HCL [Concomitant]

REACTIONS (1)
  - IVTH NERVE PARALYSIS [None]
